FAERS Safety Report 8099861-7 (Version None)
Quarter: 2012Q1

REPORT INFORMATION
  Report Type: 
  Country: None (occurrence: None)
  Receive Date: 20120129
  Receipt Date: 20111010
  Transmission Date: 20120608
  Serious: No
  Sender: FDA-Public Use
  Company Number: US-ABBOTT-11P-163-0862675-00

PATIENT
  Age: 11 Year
  Sex: Female

DRUGS (1)
  1. HUMIRA [Suspect]
     Indication: OSTEOMYELITIS CHRONIC
     Dosage: 1 SYRINGE, UNSURE IF 20 MG OR 40 MG
     Dates: start: 20110822

REACTIONS (3)
  - INAPPROPRIATE SCHEDULE OF DRUG ADMINISTRATION [None]
  - FEAR [None]
  - INJECTION SITE PAIN [None]
